FAERS Safety Report 14977294 (Version 2)
Quarter: 2018Q3

REPORT INFORMATION
  Report Type: Spontaneous
  Country: IN (occurrence: IN)
  Receive Date: 20180606
  Receipt Date: 20180921
  Transmission Date: 20181010
  Serious: Yes (Death, Hospitalization)
  Sender: FDA-Public Use
  Company Number: IN-TAKEDA-2018TUS009305

PATIENT
  Sex: Male

DRUGS (1)
  1. ICLUSIG [Suspect]
     Active Substance: PONATINIB
     Indication: ACUTE LYMPHOCYTIC LEUKAEMIA
     Dosage: 45 MG, UNK
     Route: 048

REACTIONS (4)
  - Lower respiratory tract congestion [Unknown]
  - Cardio-respiratory distress [Fatal]
  - Eye infection [Unknown]
  - Full blood count decreased [Unknown]
